FAERS Safety Report 7463095-7 (Version None)
Quarter: 2011Q2

REPORT INFORMATION
  Report Type: 
  Country: None (occurrence: None)
  Receive Date: 20110506
  Receipt Date: 20110428
  Transmission Date: 20111010
  Serious: Yes (Other)
  Sender: FDA-Public Use
  Company Number: CN-ROCHE-607957

PATIENT
  Sex: Male
  Weight: 88 kg

DRUGS (6)
  1. SANDIMMUNE [Concomitant]
     Route: 048
     Dates: start: 20070401, end: 20080101
  2. CELLCEPT [Suspect]
     Route: 048
     Dates: start: 20060101, end: 20070101
  3. CELLCEPT [Suspect]
     Indication: RENAL TRANSPLANT
     Route: 048
     Dates: start: 20030301, end: 20060101
  4. SANDIMMUNE [Concomitant]
     Indication: RENAL TRANSPLANT
     Route: 048
     Dates: start: 20030301, end: 20070401
  5. PROGRAF [Concomitant]
     Indication: RENAL TRANSPLANT
     Route: 048
     Dates: start: 20080101
  6. CELLCEPT [Suspect]
     Route: 048
     Dates: start: 20070101

REACTIONS (3)
  - DIARRHOEA [None]
  - TRANSPLANT REJECTION [None]
  - PROTEIN URINE PRESENT [None]
